FAERS Safety Report 16389307 (Version 1)
Quarter: 2019Q3

REPORT INFORMATION
  Report Type: Spontaneous
  Country: US (occurrence: US)
  Receive Date: 20190603
  Receipt Date: 20190603
  Transmission Date: 20191004
  Serious: Yes (Disabling)
  Sender: FDA-Public Use
  Company Number: None

PATIENT
  Age: 49 Year
  Sex: Male
  Weight: 96.75 kg

DRUGS (9)
  1. BUPROPION HCL EXTENDED-RELEASE TABLETS (XL) 150 MG (ONCE DAILY) [Suspect]
     Active Substance: BUPROPION HYDROCHLORIDE
     Indication: DEPRESSION
     Dosage: ?          QUANTITY:3 TABLET(S);?
     Route: 048
     Dates: start: 20190504, end: 20190602
  2. PROBIOTIC [Concomitant]
     Active Substance: PROBIOTICS NOS
  3. BIPAP MACHINE [Concomitant]
  4. METFORMIN [Concomitant]
     Active Substance: METFORMIN HYDROCHLORIDE
  5. SIMVASTATIN. [Concomitant]
     Active Substance: SIMVASTATIN
  6. TUMS [Concomitant]
     Active Substance: CALCIUM CARBONATE
  7. METOPROLOL. [Concomitant]
     Active Substance: METOPROLOL
  8. VITAMIN D3 [Concomitant]
     Active Substance: CHOLECALCIFEROL
  9. ONE-A-DAY MEN^S MULTIVITAMIN [Concomitant]

REACTIONS (6)
  - Panic attack [None]
  - Mood swings [None]
  - Irritability [None]
  - Insomnia [None]
  - Restlessness [None]
  - Product substitution issue [None]

NARRATIVE: CASE EVENT DATE: 20190518
